FAERS Safety Report 9140462 (Version 2)
Quarter: 2013Q2

REPORT INFORMATION
  Report Type: Report from Study
  Country: US (occurrence: US)
  Receive Date: 20130305
  Receipt Date: 20130524
  Transmission Date: 20140414
  Serious: Yes (Other)
  Sender: FDA-Public Use
  Company Number: US-ROCHE-1044138

PATIENT
  Sex: 0

DRUGS (24)
  1. RITUXIMAB [Suspect]
     Indication: DIFFUSE LARGE B-CELL LYMPHOMA
     Route: 065
  2. RITUXIMAB [Suspect]
     Indication: MANTLE CELL LYMPHOMA
  3. RITUXIMAB [Suspect]
     Indication: CHRONIC LYMPHOCYTIC LEUKAEMIA
  4. GEMCITABINE HYDROCHLORIDE [Suspect]
     Indication: NEOPLASM MALIGNANT
     Route: 065
  5. BEVACIZUMAB [Suspect]
     Indication: ADENOCARCINOMA
     Route: 065
  6. CAPECITABINE [Suspect]
     Indication: ADENOCARCINOMA
     Route: 065
  7. CYCLOPHOSPHAMIDE [Suspect]
     Indication: DIFFUSE LARGE B-CELL LYMPHOMA
     Route: 065
  8. CYCLOPHOSPHAMIDE [Suspect]
     Indication: MANTLE CELL LYMPHOMA
  9. CYCLOPHOSPHAMIDE [Suspect]
     Indication: CHRONIC LYMPHOCYTIC LEUKAEMIA
  10. DOXORUBICIN [Suspect]
     Indication: DIFFUSE LARGE B-CELL LYMPHOMA
     Route: 065
  11. DOXORUBICIN [Suspect]
     Indication: MANTLE CELL LYMPHOMA
  12. VINCRISTINE [Suspect]
     Indication: DIFFUSE LARGE B-CELL LYMPHOMA
     Route: 065
  13. VINCRISTINE [Suspect]
     Indication: MANTLE CELL LYMPHOMA
  14. PREDNISONE [Suspect]
     Indication: DIFFUSE LARGE B-CELL LYMPHOMA
     Route: 065
  15. DEXAMETHASONE [Suspect]
     Indication: DIFFUSE LARGE B-CELL LYMPHOMA
     Route: 065
  16. DEXAMETHASONE [Suspect]
     Indication: MANTLE CELL LYMPHOMA
  17. METHOTREXATE [Suspect]
     Indication: DIFFUSE LARGE B-CELL LYMPHOMA
     Route: 065
  18. METHOTREXATE [Suspect]
     Indication: MANTLE CELL LYMPHOMA
  19. CYTARABINE [Suspect]
     Indication: DIFFUSE LARGE B-CELL LYMPHOMA
     Route: 065
  20. CYTARABINE [Suspect]
     Indication: MANTLE CELL LYMPHOMA
  21. OXALIPLATIN [Suspect]
     Indication: DIFFUSE LARGE B-CELL LYMPHOMA
     Route: 065
  22. BORTEZOMIB [Suspect]
     Indication: DIFFUSE LARGE B-CELL LYMPHOMA
     Route: 065
  23. FLUDARABINE [Suspect]
     Indication: CHRONIC LYMPHOCYTIC LEUKAEMIA
     Route: 065
  24. IRINOTECAN [Suspect]
     Indication: ADENOCARCINOMA
     Route: 065

REACTIONS (1)
  - Alanine aminotransferase increased [Unknown]
